FAERS Safety Report 10960342 (Version 1)
Quarter: 2015Q1

REPORT INFORMATION
  Report Type: Spontaneous
  Country: FR (occurrence: FR)
  Receive Date: 20150327
  Receipt Date: 20150327
  Transmission Date: 20150721
  Serious: Yes (Hospitalization)
  Sender: FDA-Public Use
  Company Number: FR-SA-2015SA036652

PATIENT
  Age: 86 Year
  Sex: Male

DRUGS (4)
  1. DIFFU K [Suspect]
     Active Substance: POTASSIUM CHLORIDE
     Route: 048
     Dates: start: 20150121
  2. LOVENOX [Suspect]
     Active Substance: ENOXAPARIN SODIUM
     Dosage: 6000 IU ANTI-XA / 0.6 ML SOLUTION
     Route: 058
     Dates: start: 20150121
  3. LASILIX [Suspect]
     Active Substance: FUROSEMIDE
     Dosage: FORM:SCORED TABLET
     Route: 048
     Dates: start: 20150121
  4. PREVISCAN [Suspect]
     Active Substance: FLUINDIONE
     Dosage: FORM: SCORED TABLET?STRENGTH: 20 MG
     Route: 048
     Dates: start: 20150121, end: 20150127

REACTIONS (2)
  - Pancytopenia [Recovered/Resolved]
  - Ecchymosis [Recovering/Resolving]

NARRATIVE: CASE EVENT DATE: 20150127
